FAERS Safety Report 8312266-6 (Version None)
Quarter: 2012Q2

REPORT INFORMATION
  Report Type: 
  Country: None (occurrence: None)
  Receive Date: 20120425
  Receipt Date: 20120419
  Transmission Date: 20120825
  Serious: Yes (Death)
  Sender: FDA-Public Use
  Company Number: US-INCYTE CORPORATION-2012IN000618

PATIENT
  Sex: Female

DRUGS (13)
  1. GLIPIZIDE [Concomitant]
     Dosage: 2.5 MG, UNK
  2. ADCIRCA [Concomitant]
     Dosage: 20 MG, UNK
  3. ARIMIDEX [Concomitant]
     Dosage: 1 MG, UNK
  4. POTASSIUM CHLORIDE [Concomitant]
     Dosage: 10 MEQ, UNK
  5. LEXAPRO [Concomitant]
     Dosage: 20 MG, UNK
  6. HYDROXYUREA [Concomitant]
     Dosage: 500 MG, UNK
  7. PREDNISONE [Concomitant]
     Dosage: 2.5 MG, UNK
  8. LANSOPRAZOLE [Concomitant]
     Dosage: 30 MG, UNK
  9. LEVOTHYROXINE SODIUM [Concomitant]
     Dosage: 25 MCG, UNK
  10. TOPROL-XL [Concomitant]
  11. ALLOPURINOL [Concomitant]
     Dosage: 300 MG, UNK
  12. JAKAFI [Suspect]
     Dosage: 10 MG, BID
     Route: 048
  13. FUROSEMIDE [Concomitant]
     Dosage: 80 MG, UNK

REACTIONS (1)
  - DEATH [None]
